FAERS Safety Report 5813663-0 (Version None)
Quarter: 2008Q3

REPORT INFORMATION
  Report Type: 
  Country: None (occurrence: None)
  Receive Date: 20080717
  Receipt Date: 20080711
  Transmission Date: 20090109
  Serious: Yes (Hospitalization)
  Sender: FDA-Public Use
  Company Number: B0524843A

PATIENT
  Age: 47 Year
  Sex: Male

DRUGS (1)
  1. PAXIL [Suspect]
     Indication: DEPRESSION
     Dosage: 20MG PER DAY
     Route: 048
     Dates: start: 20080609, end: 20080609

REACTIONS (7)
  - ANXIETY [None]
  - COLD SWEAT [None]
  - DYSPNOEA [None]
  - HYPOAESTHESIA [None]
  - NAUSEA [None]
  - SEROTONIN SYNDROME [None]
  - TREMOR [None]
